FAERS Safety Report 4529649-2 (Version None)
Quarter: 2004Q4

REPORT INFORMATION
  Report Type: 
  Country: None (occurrence: None)
  Receive Date: 20041216
  Receipt Date: 20041210
  Transmission Date: 20050328
  Serious: Yes (Hospitalization)
  Sender: FDA-Public Use
  Company Number: FR-NOVOPROD-241043

PATIENT
  Age: 52 Year
  Sex: Female
  Weight: 55 kg

DRUGS (7)
  1. ACTRAPID [Suspect]
     Indication: DIABETES MELLITUS
     Route: 058
     Dates: start: 20041029, end: 20041031
  2. NOVOMIX 30 PENFILL [Suspect]
     Indication: DIABETES MELLITUS
     Route: 058
     Dates: start: 20041029, end: 20041116
  3. PREVISCAN [Concomitant]
     Dosage: 1 DOSE ORAL DAILY
  4. RIVOTRIL [Concomitant]
     Route: 048
  5. AUGMENTIN                               /UNK/ [Concomitant]
     Dosage: 1 THREE TIMES/DAY
     Dates: start: 20041029, end: 20041115
  6. LOVENOX [Concomitant]
     Dosage: 1 DAILY
     Route: 058
     Dates: start: 20041029, end: 20041101
  7. NOVOMIX 30 [Concomitant]
     Route: 058
     Dates: start: 20041029, end: 20041116

REACTIONS (1)
  - NEUTROPENIA [None]
